FAERS Safety Report 22329475 (Version 1)
Quarter: 2023Q2

REPORT INFORMATION
  Report Type: Spontaneous
  Country: US (occurrence: US)
  Receive Date: 20230517
  Receipt Date: 20230517
  Transmission Date: 20230721
  Serious: No
  Sender: FDA-Public Use
  Company Number: US-drreddys-SPO/USA/23/0164539

PATIENT
  Age: 16 Year

DRUGS (2)
  1. ZENATANE [Suspect]
     Active Substance: ISOTRETINOIN
     Indication: Acne
     Dosage: RMA ISSUE DATE: 20/FEBRUARY//2023 09:39:35 AM, 28/MARCH/2023 08:08:56 AM
  2. ACCUTANE [Suspect]
     Active Substance: ISOTRETINOIN
     Indication: Product used for unknown indication
     Dosage: RMA ISSUE DATE: 25OCTOBER//2022 01:52:53 PM, 21/NOVEMBER/2022 03:04:07 PM, 09/JANUARY/2023 12:40:07

REACTIONS (1)
  - Arthralgia [Unknown]
